FAERS Safety Report 21191512 (Version 1)
Quarter: 2022Q3

REPORT INFORMATION
  Report Type: Other
  Country: CN (occurrence: None)
  Receive Date: 20220809
  Receipt Date: 20220809
  Transmission Date: 20221027
  Serious: Yes (Other)
  Sender: FDA-Public Use
  Company Number: CN-ROCHE-3157518

PATIENT

DRUGS (3)
  1. BEVACIZUMAB [Suspect]
     Active Substance: BEVACIZUMAB
     Indication: Metastases to central nervous system
     Dosage: 5 MG/KG EACH TIME, CONTINUOUS INTRAVENOUS PUMP, MAINTAINED FOR 30 - 60 MIN, ONCE EVERY 2 WEEKS; ON T
     Route: 042
  2. TEMOZOLOMIDE [Suspect]
     Active Substance: TEMOZOLOMIDE
     Indication: Metastases to central nervous system
     Dosage: WAS STARTED FOR 4 WEEKS.
     Route: 065
  3. APATINIB [Suspect]
     Active Substance: APATINIB
     Indication: Metastases to central nervous system
     Dosage: WAS ADMINISTERED AT A DOSE OF 250 MG/TIME AS A SINGLE DOSE, 30 MINUTES AFTER MEALS, CONTINUOUSLY EVE
     Route: 065

REACTIONS (1)
  - Myelosuppression [Unknown]
